FAERS Safety Report 7705354-6 (Version None)
Quarter: 2011Q3

REPORT INFORMATION
  Report Type: 
  Country: None (occurrence: None)
  Receive Date: 20110824
  Receipt Date: 20110815
  Transmission Date: 20111222
  Serious: Yes (Other)
  Sender: FDA-Public Use
  Company Number: AR-GENZYME-THYM-1002638

PATIENT
  Age: 25 Year
  Sex: Female

DRUGS (5)
  1. EXJADE [Concomitant]
     Indication: PRODUCT USED FOR UNKNOWN INDICATION
  2. BENADRYL [Concomitant]
     Indication: PREMEDICATION
  3. THYMOGLOBULIN [Suspect]
     Indication: BONE MARROW FAILURE
     Dosage: UNK
     Route: 042
     Dates: start: 20101101
  4. THYMOGLOBULIN [Suspect]
     Dosage: 175 MG, QD
     Route: 042
     Dates: start: 20110708, end: 20110711
  5. HYDROCORTISONE [Concomitant]
     Indication: PREMEDICATION
     Dosage: UNK

REACTIONS (2)
  - HYPERSENSITIVITY [None]
  - LARYNGOSPASM [None]
